FAERS Safety Report 7690423-X (Version None)
Quarter: 2011Q3

REPORT INFORMATION
  Report Type: 
  Country: None (occurrence: None)
  Receive Date: 20110818
  Receipt Date: 20100511
  Transmission Date: 20111222
  Serious: No
  Sender: FDA-Public Use
  Company Number: US-BAYER-201022469NA

PATIENT
  Age: 43 Year
  Sex: Female
  Weight: 70.295 kg

DRUGS (2)
  1. MIRENA [Suspect]
     Indication: MENORRHAGIA
  2. MIRENA [Suspect]
     Indication: CONTRACEPTION
     Dosage: 20 ?G/D, CONT
     Route: 015
     Dates: start: 20090401

REACTIONS (4)
  - FATIGUE [None]
  - WEIGHT INCREASED [None]
  - MOOD SWINGS [None]
  - DEPRESSION [None]
